FAERS Safety Report 10790563 (Version 1)
Quarter: 2015Q1

REPORT INFORMATION
  Report Type: Spontaneous
  Country: IT (occurrence: IT)
  Receive Date: 20150212
  Receipt Date: 20150212
  Transmission Date: 20150721
  Serious: Yes (Other)
  Sender: FDA-Public Use
  Company Number: IT-GLAXOSMITHKLINE CONSUMER HEALTHCARE INC.-IT2015GSK017645

PATIENT
  Age: 45 Year
  Sex: Female

DRUGS (2)
  1. BACTROBAN [Suspect]
     Active Substance: MUPIROCIN\MUPIROCIN CALCIUM
     Indication: POSTOPERATIVE WOUND INFECTION
     Dosage: UNK
     Dates: start: 20150103, end: 20150103
  2. DESLORATADINA [Concomitant]

REACTIONS (4)
  - Chest discomfort [Recovered/Resolved]
  - Nasal oedema [Recovered/Resolved]
  - Hypertension [Recovered/Resolved]
  - Asthmatic crisis [Recovered/Resolved]

NARRATIVE: CASE EVENT DATE: 20150103
